FAERS Safety Report 20675336 (Version 1)
Quarter: 2022Q2

REPORT INFORMATION
  Report Type: Spontaneous
  Country: KR (occurrence: None)
  Receive Date: 20220405
  Receipt Date: 20220405
  Transmission Date: 20220721
  Serious: Yes (Other)
  Sender: FDA-Public Use
  Company Number: 2022A130816

PATIENT
  Sex: Female

DRUGS (2)
  1. TAGRISSO [Suspect]
     Active Substance: OSIMERTINIB
     Dosage: 80.0MG UNKNOWN
     Route: 048
  2. GASTROINTESTINAL MEDICINE [Concomitant]

REACTIONS (3)
  - Fall [Unknown]
  - Muscular weakness [Unknown]
  - Vomiting [Unknown]
